FAERS Safety Report 7206211-4 (Version None)
Quarter: 2011Q1

REPORT INFORMATION
  Report Type: 
  Country: None (occurrence: None)
  Receive Date: 20110103
  Receipt Date: 20101221
  Transmission Date: 20110831
  Serious: Yes (Hospitalization)
  Sender: FDA-Public Use
  Company Number: US-ELI_LILLY_AND_COMPANY-US201008004480

PATIENT
  Sex: Female

DRUGS (10)
  1. HYDROCODONE [Concomitant]
  2. CENTRUM SILVER [Concomitant]
  3. IMDUR [Concomitant]
  4. VASOTEC [Concomitant]
  5. SYNTHROID [Concomitant]
  6. LOPRESSOR [Concomitant]
  7. PLAVIX [Concomitant]
  8. FORTEO [Suspect]
     Indication: OSTEOPOROSIS
     Dosage: 20 UG, DAILY (1/D)
     Route: 065
     Dates: start: 20100801
  9. ASPIRIN [Concomitant]
  10. FLEXERIL [Concomitant]

REACTIONS (4)
  - OEDEMA PERIPHERAL [None]
  - STENT PLACEMENT [None]
  - DRY MOUTH [None]
  - HEART RATE IRREGULAR [None]
